FAERS Safety Report 23289205 (Version 1)
Quarter: 2023Q4

REPORT INFORMATION
  Report Type: Spontaneous
  Country: CN (occurrence: CN)
  Receive Date: 20231212
  Receipt Date: 20231212
  Transmission Date: 20240110
  Serious: Yes (Death, Other)
  Sender: FDA-Public Use
  Company Number: CN-AMGEN-CHNSP2023218657

PATIENT

DRUGS (1)
  1. XGEVA [Suspect]
     Active Substance: DENOSUMAB
     Indication: Bone giant cell tumour
     Dosage: 120 MILLIGRAM (ON DAYS 1, 8, 15, AND 22)
     Route: 065

REACTIONS (7)
  - Bone giant cell tumour [Fatal]
  - Cerebrospinal fluid leakage [Unknown]
  - Pneumothorax [Unknown]
  - Haemothorax [Unknown]
  - Postoperative wound infection [Unknown]
  - Procedural failure [Unknown]
  - Procedural haemorrhage [Unknown]
